FAERS Safety Report 9423379 (Version 1)
Quarter: 2013Q3

REPORT INFORMATION
  Report Type: Spontaneous
  Country: CR (occurrence: CR)
  Receive Date: 20130726
  Receipt Date: 20130726
  Transmission Date: 20140515
  Serious: Yes (Other)
  Sender: FDA-Public Use
  Company Number: CR-ASTRAZENECA-2013SE56089

PATIENT
  Age: 46 Year
  Sex: Female

DRUGS (4)
  1. NEXIUM [Suspect]
     Indication: GASTROOESOPHAGEAL REFLUX DISEASE
     Route: 048
  2. LANZOPRAL [Concomitant]
  3. PANTECTA [Concomitant]
  4. PAMEZONE [Concomitant]

REACTIONS (1)
  - Haemorrhoids [Recovered/Resolved]
